FAERS Safety Report 5899442-7 (Version None)
Quarter: 2008Q3

REPORT INFORMATION
  Report Type: 
  Country: None (occurrence: None)
  Receive Date: 20080924
  Receipt Date: 20080915
  Transmission Date: 20090109
  Serious: No
  Sender: FDA-Public Use
  Company Number: 2008BI016254

PATIENT
  Age: 44 Year
  Sex: Female
  Weight: 90.7194 kg

DRUGS (1)
  1. TYSABRI [Suspect]
     Indication: MULTIPLE SCLEROSIS
     Dosage: 300 MG;QM;IV
     Route: 042
     Dates: start: 20080222

REACTIONS (5)
  - BACK PAIN [None]
  - CONFUSIONAL STATE [None]
  - DYSSTASIA [None]
  - GAIT DISTURBANCE [None]
  - PARAESTHESIA [None]
